FAERS Safety Report 24056384 (Version 2)
Quarter: 2025Q1

REPORT INFORMATION
  Report Type: Spontaneous
  Country: US (occurrence: US)
  Receive Date: 20240705
  Receipt Date: 20250122
  Transmission Date: 20250408
  Serious: No
  Sender: SANOFI AVENTIS
  Company Number: US-SA-SAC20240627001097

PATIENT
  Sex: Male
  Weight: 132 kg

DRUGS (30)
  1. DUPIXENT [Suspect]
     Active Substance: DUPILUMAB
     Indication: Asthma
     Dosage: 300 MG, QOW
     Route: 058
  2. MIRALAX [Concomitant]
     Active Substance: POLYETHYLENE GLYCOL 3350
  3. MELATONIN [Concomitant]
     Active Substance: MELATONIN
     Route: 048
  4. OXYMETAZOLINE HYDROCHLORIDE [Concomitant]
     Active Substance: OXYMETAZOLINE HYDROCHLORIDE
  5. VITAMIN B12 [Concomitant]
     Active Substance: CYANOCOBALAMIN
     Route: 048
  6. VITAMINS NOS [Concomitant]
     Active Substance: VITAMINS
     Route: 048
  7. PEPPERMINT OIL [Concomitant]
     Active Substance: PEPPERMINT OIL
  8. ALLEGRA ALLERGY [Concomitant]
     Active Substance: FEXOFENADINE HYDROCHLORIDE
     Route: 048
  9. NYSTATIN [Concomitant]
     Active Substance: NYSTATIN
  10. KETOCONAZOLE [Concomitant]
     Active Substance: KETOCONAZOLE
  11. OLOPATADINE HYDROCHLORIDE [Concomitant]
     Active Substance: OLOPATADINE HYDROCHLORIDE
  12. FLUTICASONE PROPIONATE [Concomitant]
     Active Substance: FLUTICASONE PROPIONATE
  13. ALBUTEROL SULFATE [Concomitant]
     Active Substance: ALBUTEROL SULFATE
  14. ALBUTEROL SULFATE [Concomitant]
     Active Substance: ALBUTEROL SULFATE
  15. AZELASTINE HYDROCHLORIDE [Concomitant]
     Active Substance: AZELASTINE HYDROCHLORIDE
  16. GAS-X [Concomitant]
     Active Substance: DIMETHICONE
  17. TRIAMCINOLONE ACETONIDE [Concomitant]
     Active Substance: TRIAMCINOLONE ACETONIDE
  18. MUPIROCIN [Concomitant]
     Active Substance: MUPIROCIN
  19. ONDANSETRON HYDROCHLORIDE [Concomitant]
     Active Substance: ONDANSETRON HYDROCHLORIDE
  20. TYLENOL [Concomitant]
     Active Substance: ACETAMINOPHEN
  21. METAMUCIL [Concomitant]
     Active Substance: PLANTAGO SEED
  22. LINZESS [Concomitant]
     Active Substance: LINACLOTIDE
  23. OMEPRAZOLE [Concomitant]
     Active Substance: OMEPRAZOLE
  24. CALADRYL CLEAR [Concomitant]
     Active Substance: PRAMOXINE HYDROCHLORIDE\ZINC ACETATE
  25. BUPROPION HYDROCHLORIDE [Concomitant]
     Active Substance: BUPROPION HYDROCHLORIDE
  26. LISINOPRIL [Concomitant]
     Active Substance: LISINOPRIL
  27. PREPARATION H HYDROCORTISONE [Concomitant]
     Active Substance: HYDROCORTISONE
  28. ALUMINUM HYDROXIDE\MAGNESIUM TRISILICATE [Concomitant]
     Active Substance: ALUMINUM HYDROXIDE\MAGNESIUM TRISILICATE
  29. ESCITALOPRAM OXALATE [Concomitant]
     Active Substance: ESCITALOPRAM OXALATE
  30. VICKS BABY RUB [Concomitant]

REACTIONS (4)
  - Weight fluctuation [Unknown]
  - Developmental delay [Unknown]
  - Anxiety [Unknown]
  - Hypersensitivity [Unknown]
